FAERS Safety Report 10596965 (Version 1)
Quarter: 2014Q4

REPORT INFORMATION
  Report Type: Spontaneous
  Country: GB (occurrence: GB)
  Receive Date: 20141120
  Receipt Date: 20141120
  Transmission Date: 20150529
  Serious: Yes (Other)
  Sender: FDA-Public Use
  Company Number: PHHY2014GB149697

PATIENT
  Age: 57 Year
  Sex: Male
  Weight: 92 kg

DRUGS (2)
  1. PERINDOPRIL [Concomitant]
     Active Substance: PERINDOPRIL
     Indication: HYPERTENSION
     Dosage: 8 MG, QD
     Route: 065
  2. ATORVASTATIN [Suspect]
     Active Substance: ATORVASTATIN
     Indication: BLOOD CHOLESTEROL
     Dosage: 40 MG, BID
     Route: 065
     Dates: start: 20141030, end: 20141031

REACTIONS (5)
  - Influenza like illness [Recovered/Resolved]
  - Eyelid oedema [Recovered/Resolved]
  - Headache [Recovered/Resolved]
  - Lip swelling [Recovered/Resolved]
  - Nausea [Recovered/Resolved]
